FAERS Safety Report 5177544-0 (Version None)
Quarter: 2006Q4

REPORT INFORMATION
  Report Type: 
  Country: None (occurrence: None)
  Receive Date: 20061207
  Receipt Date: 20061205
  Transmission Date: 20070319
  Serious: Yes (Death, Hospitalization)
  Sender: FDA-Public Use
  Company Number: 163-20785-06091203

PATIENT
  Age: 44 Year
  Sex: Female

DRUGS (8)
  1. THALOMID [Suspect]
     Indication: LYMPHOMA
     Dosage: 100 MG, 2 IN 1 D, ORAL
     Route: 048
     Dates: start: 20060219
  2. OXYCODONE HCL [Suspect]
     Indication: DRUG USE FOR UNKNOWN INDICATION
  3. CELLCEPT [Concomitant]
  4. TACROLIMUS (TACROLIMUS) [Concomitant]
  5. ETIDRONATE (ETIDRONATE DISODIUM) [Concomitant]
  6. ACYCLOVIR [Concomitant]
  7. FLUCONAZOLE [Concomitant]
  8. LEVAQUIN [Concomitant]

REACTIONS (4)
  - GRAFT VERSUS HOST DISEASE [None]
  - PYREXIA [None]
  - SKIN INFECTION [None]
  - SUPERINFECTION [None]
